FAERS Safety Report 17935295 (Version 1)
Quarter: 2020Q2

REPORT INFORMATION
  Report Type: Spontaneous
  Country: US (occurrence: US)
  Receive Date: 20200624
  Receipt Date: 20200624
  Transmission Date: 20200714
  Serious: No
  Sender: FDA-Public Use
  Company Number: US-MYLANLABS-2020M1058340

PATIENT
  Sex: Female

DRUGS (1)
  1. FENTANYL TRANSDERMAL SYSTEM [Suspect]
     Active Substance: FENTANYL
     Indication: PRODUCT USED FOR UNKNOWN INDICATION
     Dosage: USES 2 A DAY OF THE 25 MCG EVERY 3RD DAY
     Route: 062

REACTIONS (2)
  - Product adhesion issue [Unknown]
  - Wrong technique in product usage process [Recovered/Resolved]
